FAERS Safety Report 10578412 (Version 1)
Quarter: 2014Q4

REPORT INFORMATION
  Report Type: Spontaneous
  Country: US (occurrence: None)
  Receive Date: 20141111
  Receipt Date: 20141111
  Transmission Date: 20150529
  Serious: No
  Sender: FDA-Public Use
  Company Number: None

PATIENT
  Age: 43 Year
  Sex: Female
  Weight: 118 kg

DRUGS (10)
  1. DIAZEPAM. [Concomitant]
     Active Substance: DIAZEPAM
  2. ONDANSETRON [Concomitant]
     Active Substance: ONDANSETRON
  3. CIPROFLOXACIN 400 MG HOSPIRA [Suspect]
     Active Substance: CIPROFLOXACIN
     Indication: GASTROENTERITIS
     Route: 042
     Dates: start: 20141104, end: 20141104
  4. IBUPROFEN. [Concomitant]
     Active Substance: IBUPROFEN
  5. NOVOLOG [Concomitant]
     Active Substance: INSULIN ASPART
  6. MIGRAINE IV COCKTAIL (KETOROLAC, METOCLOPRAMIDE, MAGNESIUM SULFATE 50%, DEXAMETHASONE) [Concomitant]
  7. CIPROFLOXACIN 400 MG HOSPIRA [Suspect]
     Active Substance: CIPROFLOXACIN
     Indication: LEUKOCYTOSIS
     Route: 042
     Dates: start: 20141104, end: 20141104
  8. LEVEMIR [Concomitant]
     Active Substance: INSULIN DETEMIR
  9. METRONDIAZOLE 500 MG [Concomitant]
     Active Substance: METRONIDAZOLE
  10. FENTANYL. [Concomitant]
     Active Substance: FENTANYL

REACTIONS (2)
  - Injection site pruritus [None]
  - Drug hypersensitivity [None]

NARRATIVE: CASE EVENT DATE: 20141104
